FAERS Safety Report 7350060-3 (Version None)
Quarter: 2011Q1

REPORT INFORMATION
  Report Type: 
  Country: None (occurrence: None)
  Receive Date: 20110314
  Receipt Date: 20110308
  Transmission Date: 20110831
  Serious: Yes (Hospitalization)
  Sender: FDA-Public Use
  Company Number: FR-ROCHE-764815

PATIENT
  Age: 65 Year
  Sex: Female

DRUGS (1)
  1. ROACTEMRA [Suspect]
     Indication: RHEUMATOID ARTHRITIS
     Dosage: FORM: INFUSION.
     Route: 065
     Dates: start: 20100601, end: 20110202

REACTIONS (3)
  - HEPATIC CIRRHOSIS [None]
  - CYTOLYTIC HEPATITIS [None]
  - HYPERLIPIDAEMIA [None]
